FAERS Safety Report 8966790 (Version 1)
Quarter: 2012Q4

REPORT INFORMATION
  Report Type: 
  Country: US (occurrence: US)
  Receive Date: 20121214
  Receipt Date: 20121214
  Transmission Date: 20130627
  Serious: No
  Sender: FDA-Public Use
  Company Number: US-009507513-1212USA004614

PATIENT
  Sex: Female

DRUGS (4)
  1. PEGINTRON [Suspect]
     Indication: HEPATITIS C
     Dosage: UNK, redipen
     Dates: start: 20000101, end: 20001101
  2. PEGINTRON [Suspect]
     Dosage: UNK
     Dates: start: 20121017
  3. RIBAVIRIN [Suspect]
     Indication: HEPATITIS C
     Dosage: UNK
     Dates: start: 20000101, end: 20001101
  4. RIBAVIRIN [Suspect]
     Dosage: UNK
     Dates: start: 20121017

REACTIONS (1)
  - Drug ineffective [Unknown]
